FAERS Safety Report 11832079 (Version 1)
Quarter: 2015Q4

REPORT INFORMATION
  Report Type: Report from Study
  Country: AR (occurrence: AR)
  Receive Date: 20151214
  Receipt Date: 20151214
  Transmission Date: 20160305
  Serious: Yes (Other)
  Sender: FDA-Public Use
  Company Number: PHHY2015AR162541

PATIENT
  Sex: Female

DRUGS (1)
  1. EXFORGE [Suspect]
     Active Substance: AMLODIPINE BESYLATE\VALSARTAN
     Indication: HYPERTENSION
     Dosage: 2 DF (160 MG VALSARTAN AND 5 MG AMLODIPINE), QD
     Route: 065

REACTIONS (2)
  - Seizure [Recovering/Resolving]
  - Wrong technique in product usage process [Unknown]
